FAERS Safety Report 4439539-1 (Version None)
Quarter: 2004Q3

REPORT INFORMATION
  Report Type: 
  Country: None (occurrence: None)
  Receive Date: 20040830
  Receipt Date: 20040819
  Transmission Date: 20050211
  Serious: Yes (Hospitalization)
  Sender: FDA-Public Use
  Company Number: 2004PK01407

PATIENT
  Age: 58 Year
  Sex: Male

DRUGS (7)
  1. MERONEM [Suspect]
     Indication: LUNG INFECTION
     Dosage: 1 G IV
     Route: 042
     Dates: start: 20040413, end: 20040419
  2. DEPAKENE [Suspect]
     Indication: EPILEPSY
     Dosage: 300 MG DAILY PO
     Route: 048
     Dates: end: 20040413
  3. CLARITHROMYCIN [Suspect]
     Indication: LUNG INFECTION
     Dosage: 500 MG PO
     Route: 048
     Dates: start: 20040413, end: 20040419
  4. ACETAMINOPHEN [Suspect]
     Indication: PYREXIA
     Dosage: 500 MG PO
     Route: 048
     Dates: start: 20040413, end: 20040422
  5. KEPPRA [Suspect]
     Indication: EPILEPSY
     Dosage: 500 MG PO
     Route: 048
     Dates: start: 20040413
  6. TAVANIC [Concomitant]
  7. DIAMOX [Concomitant]

REACTIONS (6)
  - AGRANULOCYTOSIS [None]
  - LEGIONELLA SEROLOGY POSITIVE [None]
  - LUNG INFILTRATION [None]
  - PANCYTOPENIA [None]
  - RESPIRATORY FAILURE [None]
  - SEPSIS [None]
